FAERS Safety Report 9341806 (Version 3)
Quarter: 2014Q1

REPORT INFORMATION
  Report Type: Report from Study
  Country: CA (occurrence: CA)
  Receive Date: 20130611
  Receipt Date: 20140109
  Transmission Date: 20141002
  Serious: Yes (Other)
  Sender: FDA-Public Use
  Company Number: CA-ROCHE-1135258

PATIENT
  Age: 76 Year
  Sex: Female

DRUGS (18)
  1. RITUXIMAB [Suspect]
     Indication: RHEUMATOID ARTHRITIS
     Route: 042
     Dates: start: 20120604
  2. RITUXIMAB [Suspect]
     Dosage: PREVIOUS DOSE RECIEVED ON 10/OCT/2012
     Route: 042
     Dates: start: 20120918
  3. RITUXIMAB [Suspect]
     Route: 042
     Dates: start: 20130813
  4. RITUXIMAB [Suspect]
     Route: 042
     Dates: start: 20130827
  5. TYLENOL [Concomitant]
     Indication: PREMEDICATION
     Route: 048
     Dates: start: 20120918, end: 20120918
  6. BENADRYL (CANADA) [Concomitant]
     Indication: PREMEDICATION
     Route: 048
     Dates: start: 20120918, end: 20120918
  7. BENADRYL (CANADA) [Concomitant]
     Route: 042
     Dates: start: 20130813
  8. SOLU-MEDROL [Concomitant]
     Indication: PREMEDICATION
     Route: 042
     Dates: start: 20120918, end: 20120918
  9. CHOLESTYRAMINE [Concomitant]
  10. LORAZEPAM [Concomitant]
  11. AGRENOX [Concomitant]
  12. SYNTHROID [Concomitant]
  13. VITAMIN C [Concomitant]
  14. TYLENOL EXTRA STRENGTH [Concomitant]
  15. ATORVASTATIN [Concomitant]
  16. DIPHENHYDRAMINE HCL [Concomitant]
     Route: 048
     Dates: start: 20120918
  17. ACETAMINOPHEN [Concomitant]
     Route: 048
     Dates: start: 20120918
  18. METHYLPREDNISOLONE [Concomitant]
     Route: 042
     Dates: start: 20120918

REACTIONS (6)
  - Transient ischaemic attack [Unknown]
  - Unevaluable event [Not Recovered/Not Resolved]
  - Pneumonia [Recovered/Resolved]
  - Throat irritation [Recovered/Resolved]
  - Medication error [Unknown]
  - Rheumatoid arthritis [Unknown]
